FAERS Safety Report 4451152-9 (Version None)
Quarter: 2004Q3

REPORT INFORMATION
  Report Type: 
  Country: None (occurrence: None)
  Receive Date: 20040916
  Receipt Date: 20040907
  Transmission Date: 20050211
  Serious: Yes (Hospitalization)
  Sender: FDA-Public Use
  Company Number: 200416711US

PATIENT
  Sex: Female

DRUGS (4)
  1. LOVENOX [Suspect]
     Indication: DEEP VEIN THROMBOSIS
     Dosage: DOSE: UNK
     Dates: end: 20040701
  2. COUMADIN [Concomitant]
     Dosage: DOSE: NOT PROVIDED
  3. COREG [Concomitant]
     Dosage: DOSE: NOT PROVIDED
  4. SYNTHROID [Concomitant]
     Dosage: DOSE: NOT PROVIDED

REACTIONS (3)
  - INJECTION SITE MASS [None]
  - PAIN IN EXTREMITY [None]
  - SKIN DISCOLOURATION [None]
